FAERS Safety Report 15112034 (Version 4)
Quarter: 2020Q4

REPORT INFORMATION
  Report Type: Spontaneous
  Country: FR (occurrence: FR)
  Receive Date: 20180705
  Receipt Date: 20201008
  Transmission Date: 20210113
  Serious: Yes (Death, Life-Threatening, Other)
  Sender: FDA-Public Use
  Company Number: FR-OTSUKA-2018_018937

PATIENT
  Age: 26 Year
  Sex: Female
  Weight: 97 kg

DRUGS (13)
  1. BUSILVEX [Suspect]
     Active Substance: BUSULFAN
     Indication: BONE MARROW CONDITIONING REGIMEN
     Dosage: 281.5 MG/DAY DAY 5, 4 AND 3; 3.2 MG/KG; IV DRIP
     Route: 041
     Dates: start: 20180526, end: 20180528
  2. SODIUM CHLORIDE. [Suspect]
     Active Substance: SODIUM CHLORIDE
     Dosage: 500 ML, CYCLE 1 DAY 3, ENDOXAN 4400 MG; IV DRIP
     Route: 041
     Dates: start: 20180603, end: 20180604
  3. CICLOSPORIN [Suspect]
     Active Substance: CYCLOSPORINE
     Dosage: 3 MG/KG TARGET 200 TO 300 NG/L, FROM DAY 5 (24 HOURS AFTER LAST DOSE OF CYCLOPHOSPHAMIDE)
     Route: 042
     Dates: start: 20180605
  4. FLUDARABINE [Suspect]
     Active Substance: FLUDARABINE PHOSPHATE
     Indication: STEM CELL TRANSPLANT
     Dosage: 78 MG DAILY
     Route: 042
     Dates: start: 20180526, end: 20180529
  5. DELURSAN [Suspect]
     Active Substance: URSODIOL
     Indication: PROPHYLAXIS AGAINST GRAFT VERSUS HOST DISEASE
     Dosage: UNKNOWN
     Route: 065
  6. G-CSF [Concomitant]
     Active Substance: GRANULOCYTE COLONY-STIMULATING FACTOR NOS
     Indication: PRODUCT USED FOR UNKNOWN INDICATION
     Dosage: UNK
     Route: 065
  7. THIOTEPA. [Suspect]
     Active Substance: THIOTEPA
     Indication: STEM CELL TRANSPLANT
     Dosage: 440 MG, CONDITIONING REGIMEN; DAY 7 AND 6; 5 MG/KG; THIOTEPA 440 MG; IV DRIP
     Route: 041
     Dates: start: 20180524, end: 20180525
  8. CELLCEPT [Suspect]
     Active Substance: MYCOPHENOLATE MOFETIL\MYCOPHENOLATE MOFETIL HYDROCHLORIDE
     Indication: PROPHYLAXIS AGAINST GRAFT VERSUS HOST DISEASE
     Dosage: 45 MG/KG, FROM DAY 5 (24 HOURS AFTER LAST DOSE OF CYCLOPHOSPHAMIDE) UNTIL DAY 35, MAX 1G;
     Route: 042
     Dates: start: 20180605
  9. CICLOSPORIN [Suspect]
     Active Substance: CYCLOSPORINE
     Indication: PROPHYLAXIS AGAINST GRAFT VERSUS HOST DISEASE
     Dosage: UNKNOWN
     Route: 065
  10. ENDOXAN [Suspect]
     Active Substance: CYCLOPHOSPHAMIDE
     Indication: PROPHYLAXIS AGAINST GRAFT VERSUS HOST DISEASE
     Dosage: 4400 MG, CYCLE 1 DAY 3, 50 MG/KG, ENDOXAN 4400 MG; IV DRIP
     Route: 041
     Dates: start: 20180603, end: 20180604
  11. SODIUM CHLORIDE. [Suspect]
     Active Substance: SODIUM CHLORIDE
     Dosage: 500 ML CONDITIONING REGIMEN; DAY 7 AND 6; THIOTEPA 440 MG; IV DRIP
     Route: 041
     Dates: start: 20180524, end: 20180525
  12. UROMITEXAN [Suspect]
     Active Substance: MESNA
     Indication: PRODUCT USED FOR UNKNOWN INDICATION
     Dosage: 792 MG,  ON DAY 3, 4 AND 5, 9 MG/KG; IV DRIP
     Route: 065
     Dates: start: 20180603, end: 20180605
  13. SODIUM CHLORIDE. [Suspect]
     Active Substance: SODIUM CHLORIDE
     Indication: MEDICATION DILUTION
     Dosage: 563 ML, DAY 5, 4 AND 3; BUSILVEX 281.5 MG; IV DRIP
     Route: 041
     Dates: start: 20180526, end: 20180526

REACTIONS (20)
  - Weight increased [Fatal]
  - Myocarditis [Fatal]
  - Atelectasis [Fatal]
  - Dyspnoea [Fatal]
  - Hepatomegaly [Fatal]
  - Pneumothorax [Fatal]
  - Acute kidney injury [Fatal]
  - Pelvic fluid collection [Fatal]
  - Diplopia [Fatal]
  - Sepsis [Fatal]
  - Pericardial effusion [Fatal]
  - Mucosal inflammation [Fatal]
  - Febrile bone marrow aplasia [Fatal]
  - Nausea [Fatal]
  - Candida infection [Fatal]
  - Cardiogenic shock [Fatal]
  - Peritonitis [Fatal]
  - Pyelonephritis [Fatal]
  - Disease recurrence [Fatal]
  - Pneumonia staphylococcal [Fatal]

NARRATIVE: CASE EVENT DATE: 201806
